FAERS Safety Report 5153660-4 (Version None)
Quarter: 2006Q4

REPORT INFORMATION
  Report Type: 
  Country: None (occurrence: None)
  Receive Date: 20061114
  Receipt Date: 20061030
  Transmission Date: 20070319
  Serious: Yes (Death, Life-Threatening, Hospitalization, Other)
  Sender: FDA-Public Use
  Company Number: GXKR2006GB06787

PATIENT
  Age: 85 Year
  Sex: Male

DRUGS (9)
  1. OMEPRAZOLE [Suspect]
     Dosage: 40 MG, QD, ORAL
     Route: 048
     Dates: start: 20060915, end: 20060920
  2. CODEINE SUL TAB [Concomitant]
  3. HYPROMELLOSE (HYPROMELLOSE) [Concomitant]
  4. METOCLOPRAMIDE [Concomitant]
  5. ORAMORPH SR [Concomitant]
  6. ACETAMINOPHEN [Concomitant]
  7. PREDNISOLONE [Concomitant]
  8. POTASSIUM CHLORIDE [Concomitant]
  9. CALOGEN (ARACHIS HYPOGAEA OIL) [Concomitant]

REACTIONS (5)
  - BLISTER [None]
  - RASH [None]
  - SKIN EXFOLIATION [None]
  - SKIN NECROSIS [None]
  - STAPHYLOCOCCAL SCALDED SKIN SYNDROME [None]
